FAERS Safety Report 7579319-1 (Version None)
Quarter: 2011Q2

REPORT INFORMATION
  Report Type: 
  Country: None (occurrence: None)
  Receive Date: 20110628
  Receipt Date: 20110602
  Transmission Date: 20111010
  Serious: No
  Sender: FDA-Public Use
  Company Number: US-BAYER-2011-048502

PATIENT
  Age: 21 Year
  Sex: Female
  Weight: 86 kg

DRUGS (1)
  1. ALEVE (CAPLET) [Suspect]
     Indication: TOOTHACHE
     Dosage: CONSUME TOOK 1 OR 2 AS NEEDED. BOTTLE COUNT 24S
     Route: 048
     Dates: start: 20110531, end: 20110602

REACTIONS (1)
  - NO ADVERSE EVENT [None]
